FAERS Safety Report 7065048-X (Version None)
Quarter: 2010Q4

REPORT INFORMATION
  Report Type: 
  Country: None (occurrence: None)
  Receive Date: 20101027
  Receipt Date: 19890821
  Transmission Date: 20110411
  Serious: Yes (Death, Life-Threatening, Disabling)
  Sender: FDA-Public Use
  Company Number: US-ROCHE-890200783001

PATIENT
  Age: 46 Year
  Sex: Male
  Weight: 189.6 kg

DRUGS (3)
  1. INTERFERON ALFA-2A [Suspect]
     Indication: RENAL CELL CARCINOMA
     Route: 058
     Dates: start: 19890614
  2. INTERFERON ALFA-2A [Suspect]
     Route: 058
     Dates: end: 19890910
  3. VINBLASTINE SULFATE [Concomitant]
     Route: 065

REACTIONS (2)
  - CONVULSION [None]
  - MALIGNANT NEOPLASM PROGRESSION [None]
